FAERS Safety Report 18896387 (Version 1)
Quarter: 2021Q1

REPORT INFORMATION
  Report Type: Spontaneous
  Country: IT (occurrence: IT)
  Receive Date: 20210215
  Receipt Date: 20210215
  Transmission Date: 20210420
  Serious: Yes (Hospitalization, Other)
  Sender: FDA-Public Use
  Company Number: IT-ANIPHARMA-2021-IT-000013

PATIENT
  Age: 52 Year
  Sex: Female

DRUGS (1)
  1. NEBIVOLOL (NON?SPECIFIC) [Suspect]
     Active Substance: NEBIVOLOL
     Indication: HYPERTENSION
     Dosage: 5 MG DAILY

REACTIONS (1)
  - Rhabdomyolysis [Recovered/Resolved]
